FAERS Safety Report 4888348-8 (Version None)
Quarter: 2006Q1

REPORT INFORMATION
  Report Type: 
  Country: None (occurrence: None)
  Receive Date: 20060123
  Receipt Date: 20060116
  Transmission Date: 20060701
  Serious: Yes (Hospitalization)
  Sender: FDA-Public Use
  Company Number: FR-BRISTOL-MYERS SQUIBB COMPANY-13248166

PATIENT
  Age: 73 Year
  Sex: Male

DRUGS (6)
  1. ELISOR TABS 20 MG [Suspect]
     Indication: LIPID METABOLISM DISORDER
     Route: 048
     Dates: end: 20030330
  2. SOTALEX TABS 160 MG [Suspect]
     Indication: ARRHYTHMIA
     Route: 048
     Dates: start: 20030330, end: 20040420
  3. AMLOR [Suspect]
     Indication: ESSENTIAL HYPERTENSION
     Route: 048
     Dates: start: 20030330
  4. HYZAAR [Suspect]
     Indication: ESSENTIAL HYPERTENSION
     Route: 048
     Dates: start: 20030330
  5. PREVISCAN [Suspect]
     Indication: EMBOLISM
     Route: 048
     Dates: start: 20030330
  6. PREVISCAN [Suspect]
     Indication: VENOUS THROMBOSIS
     Route: 048
     Dates: start: 20030330

REACTIONS (4)
  - COUGH [None]
  - DYSPNOEA [None]
  - PNEUMONITIS [None]
  - PYREXIA [None]
